FAERS Safety Report 5251633-4 (Version None)
Quarter: 2007Q1

REPORT INFORMATION
  Report Type: 
  Country: None (occurrence: None)
  Receive Date: 20070228
  Receipt Date: 20061010
  Transmission Date: 20070707
  Serious: Yes (Life-Threatening, Hospitalization, Other)
  Sender: FDA-Public Use
  Company Number: US-GLAXOSMITHKLINE-A0621819A

PATIENT
  Age: 21 Year
  Sex: Male
  Weight: 88.6 kg

DRUGS (2)
  1. LAMICTAL [Suspect]
     Indication: DRUG USE FOR UNKNOWN INDICATION
     Route: 048
     Dates: start: 20060601, end: 20060913
  2. SEROQUEL [Concomitant]
     Dosage: 100MG AT NIGHT
     Route: 048
     Dates: start: 20060601

REACTIONS (2)
  - RASH [None]
  - STEVENS-JOHNSON SYNDROME [None]
